FAERS Safety Report 9820679 (Version 1)
Quarter: 2014Q1

REPORT INFORMATION
  Report Type: Spontaneous
  Country: JP (occurrence: JP)
  Receive Date: 20140116
  Receipt Date: 20140116
  Transmission Date: 20141002
  Serious: Yes (Life-Threatening, Hospitalization, Other)
  Sender: FDA-Public Use
  Company Number: JP-ASTRAZENECA-2014SE02993

PATIENT
  Age: 41 Year
  Sex: Female
  Weight: 50 kg

DRUGS (8)
  1. SEROQUEL [Suspect]
     Indication: SUICIDE ATTEMPT
     Dosage: 6 TABLETS OF 100 MG
     Route: 048
     Dates: start: 20140102
  2. SEROQUEL [Suspect]
     Indication: SUICIDE ATTEMPT
     Dosage: 10 TABLETS OF 25 MG
     Route: 048
     Dates: start: 20140102
  3. ANTIDEPRESSANTS [Concomitant]
     Indication: SUICIDE ATTEMPT
     Dates: start: 20140102
  4. HYPNOTICS AND SEDATIVES [Concomitant]
     Indication: SUICIDE ATTEMPT
     Dates: start: 20140102
  5. HYPNOTICS AND SEDATIVES [Concomitant]
     Indication: SUICIDE ATTEMPT
     Dates: start: 20140102
  6. MEDICINE FOR CENTRAL NERVOUS SYSTEM [Concomitant]
     Indication: SUICIDE ATTEMPT
     Dates: start: 20140102
  7. MEDICINE FOR CENTRAL NERVOUS SYSTEM [Concomitant]
     Indication: SUICIDE ATTEMPT
     Dates: start: 20140102
  8. ANTIANXIETICS [Concomitant]
     Indication: SUICIDE ATTEMPT
     Dates: start: 20140102

REACTIONS (3)
  - Intentional overdose [Unknown]
  - Suicide attempt [Unknown]
  - Coma [Unknown]
